FAERS Safety Report 13420846 (Version 1)
Quarter: 2017Q2

REPORT INFORMATION
  Report Type: Spontaneous
  Country: US (occurrence: US)
  Receive Date: 20170409
  Receipt Date: 20170409
  Transmission Date: 20170830
  Serious: Yes (Hospitalization, Other)
  Sender: FDA-Public Use
  Company Number: US-MYLANLABS-2017M1021828

PATIENT

DRUGS (2)
  1. AMIBIDE-DM [Concomitant]
     Indication: COUGH
     Route: 065
  2. IBUPROFEN. [Suspect]
     Active Substance: IBUPROFEN
     Indication: COUGH
     Route: 065

REACTIONS (2)
  - Fixed eruption [Recovered/Resolved with Sequelae]
  - Dermatitis bullous [Recovered/Resolved with Sequelae]
